FAERS Safety Report 5044221-6 (Version None)
Quarter: 2006Q3

REPORT INFORMATION
  Report Type: 
  Country: None (occurrence: None)
  Receive Date: 20060706
  Receipt Date: 20060630
  Transmission Date: 20061208
  Serious: Yes (Hospitalization)
  Sender: FDA-Public Use
  Company Number: FR-ROCHE-453769

PATIENT
  Age: 57 Year
  Sex: Male

DRUGS (5)
  1. CELLCEPT [Suspect]
     Indication: DRUG USE FOR UNKNOWN INDICATION
     Route: 048
     Dates: start: 20041205
  2. BLEOMYCIN [Suspect]
     Indication: DRUG USE FOR UNKNOWN INDICATION
     Dosage: 30 MG PER MONTH.
     Route: 042
     Dates: start: 20051005, end: 20060102
  3. PREVISCAN [Concomitant]
     Route: 065
  4. RAPAMUNE [Concomitant]
     Route: 048
  5. CORTANCYL [Concomitant]

REACTIONS (1)
  - LUNG INFILTRATION [None]
